FAERS Safety Report 21138808 (Version 4)
Quarter: 2022Q3

REPORT INFORMATION
  Report Type: Spontaneous
  Country: ES (occurrence: None)
  Receive Date: 20220727
  Receipt Date: 20220906
  Transmission Date: 20221027
  Serious: Yes (Death, Hospitalization)
  Sender: FDA-Public Use
  Company Number: 2018SE13538

PATIENT
  Age: 92 Year
  Sex: Female

DRUGS (10)
  1. OMEPRAZOLE [Suspect]
     Active Substance: OMEPRAZOLE
     Indication: Suicide attempt
     Dosage: 140 MG, TOTAL140.0MG ONCE/SINGLE ADMINISTRATION
     Route: 048
     Dates: start: 20170611, end: 20170611
  2. RAMIPRIL [Suspect]
     Active Substance: RAMIPRIL
     Indication: Suicide attempt
     Dosage: 17.5 MG, TOTAL (18 MG TOTAL)17.5MG ONCE/SINGLE ADMINISTRATION
     Route: 048
     Dates: start: 20170611, end: 20170611
  3. ZOLPIDEM TARTRATE [Suspect]
     Active Substance: ZOLPIDEM TARTRATE
     Indication: Suicide attempt
     Dosage: 70 MG, TOTAL70.0MG ONCE/SINGLE ADMINISTRATION
     Route: 048
     Dates: start: 20170611, end: 20170611
  4. METFORMIN [Suspect]
     Active Substance: METFORMIN HYDROCHLORIDE
     Indication: Suicide attempt
     Dosage: 18 G (NON-AZ)18.0G UNKNOWN
     Route: 048
     Dates: start: 20170611, end: 20170611
  5. OLANZAPINE [Suspect]
     Active Substance: OLANZAPINE
     Indication: Suicide attempt
     Dosage: 18 MG, TOTAL18.0MG ONCE/SINGLE ADMINISTRATION
     Route: 048
     Dates: start: 20170611, end: 20170611
  6. PREGABALIN [Suspect]
     Active Substance: PREGABALIN
     Indication: Suicide attempt
     Dosage: 1050 MG, TOTAL1050.0MG ONCE/SINGLE ADMINISTRATION
     Route: 048
     Dates: start: 20170611, end: 20170611
  7. ACETAMINOPHEN [Suspect]
     Active Substance: ACETAMINOPHEN
     Indication: Suicide attempt
     Dosage: 21 G, TOTAL21.0G ONCE/SINGLE ADMINISTRATION
     Route: 048
     Dates: start: 20170611, end: 20170611
  8. SIMVASTATIN [Suspect]
     Active Substance: SIMVASTATIN
     Indication: Suicide attempt
     Dosage: 140.0MG ONCE/SINGLE ADMINISTRATION
     Route: 048
     Dates: start: 20170611, end: 20170611
  9. CITALOPRAM [Suspect]
     Active Substance: CITALOPRAM HYDROBROMIDE
     Indication: Suicide attempt
     Dosage: 140 MG, TOTAL140.0MG ONCE/SINGLE ADMINISTRATION
     Route: 048
     Dates: start: 20170611, end: 20170611
  10. ALPRAZOLAM [Suspect]
     Active Substance: ALPRAZOLAM
     Indication: Suicide attempt
     Dosage: 7 MG,TOTAL7.0MG ONCE/SINGLE ADMINISTRATION
     Route: 048
     Dates: start: 20170611, end: 20170611

REACTIONS (1)
  - Intentional overdose [Fatal]

NARRATIVE: CASE EVENT DATE: 20170611
